FAERS Safety Report 15694151 (Version 4)
Quarter: 2019Q2

REPORT INFORMATION
  Report Type: Report from Study
  Country: US (occurrence: US)
  Receive Date: 20181206
  Receipt Date: 20190607
  Transmission Date: 20190711
  Serious: Yes (Other)
  Sender: FDA-Public Use
  Company Number: PHEH2018US050623

PATIENT
  Sex: Female

DRUGS (1)
  1. COSENTYX [Suspect]
     Active Substance: SECUKINUMAB
     Indication: PSORIATIC ARTHROPATHY
     Dosage: 300 MG, QMO
     Route: 058

REACTIONS (13)
  - Drug ineffective [Unknown]
  - Psoriatic arthropathy [Not Recovered/Not Resolved]
  - Pain in extremity [Recovering/Resolving]
  - Neuropathy peripheral [Unknown]
  - Gait inability [Unknown]
  - Peripheral swelling [Unknown]
  - Decreased appetite [Unknown]
  - Depressed mood [Unknown]
  - Fatigue [Unknown]
  - Sleep disorder [Unknown]
  - Disturbance in attention [Unknown]
  - Musculoskeletal pain [Recovering/Resolving]
  - Arthralgia [Recovering/Resolving]
